FAERS Safety Report 14953086 (Version 1)
Quarter: 2018Q2

REPORT INFORMATION
  Report Type: Report from Study
  Country: ZA (occurrence: ZA)
  Receive Date: 20180530
  Receipt Date: 20180530
  Transmission Date: 20180711
  Serious: Yes (Death, Hospitalization, Other)
  Sender: FDA-Public Use
  Company Number: PHHY2017ZA151131

PATIENT
  Age: 62 Year
  Sex: Male
  Weight: 79 kg

DRUGS (3)
  1. LCZ696 [Suspect]
     Active Substance: SACUBITRIL\VALSARTAN
     Dosage: UNK
     Route: 048
     Dates: start: 20171128
  2. LCZ696 [Suspect]
     Active Substance: SACUBITRIL\VALSARTAN
     Indication: CARDIAC FAILURE
     Dosage: 1 DF (24/26MG), UNK
     Route: 048
  3. LCZ696 [Suspect]
     Active Substance: SACUBITRIL\VALSARTAN
     Dosage: 100 MG (49/51 MG), Q12H
     Route: 048
     Dates: start: 201707

REACTIONS (8)
  - Face oedema [Unknown]
  - Gastric haemorrhage [Not Recovered/Not Resolved]
  - Oedema peripheral [Unknown]
  - Blister rupture [Not Recovered/Not Resolved]
  - Death [Fatal]
  - Cardiac failure [Unknown]
  - Fluid retention [Not Recovered/Not Resolved]
  - Dyspnoea [Unknown]

NARRATIVE: CASE EVENT DATE: 20171225
